FAERS Safety Report 15811497 (Version 4)
Quarter: 2019Q2

REPORT INFORMATION
  Report Type: Spontaneous
  Country: US (occurrence: US)
  Receive Date: 20190111
  Receipt Date: 20190531
  Transmission Date: 20190711
  Serious: Yes (Hospitalization, Other)
  Sender: FDA-Public Use
  Company Number: US-PFIZER INC-2019012662

PATIENT
  Age: 82 Year
  Sex: Female
  Weight: 93 kg

DRUGS (3)
  1. FULVESTRANT. [Concomitant]
     Active Substance: FULVESTRANT
     Dosage: UNK
     Dates: end: 20190215
  2. DENOSUMAB [Concomitant]
     Active Substance: DENOSUMAB
     Dosage: UNK
     Dates: end: 20190215
  3. IBRANCE [Suspect]
     Active Substance: PALBOCICLIB
     Indication: BREAST CANCER METASTATIC
     Dosage: 75 MG, 1X/DAY
     Route: 048
     Dates: end: 20190215

REACTIONS (18)
  - Fluid retention [Recovered/Resolved]
  - White blood cell count decreased [Unknown]
  - Loss of personal independence in daily activities [Recovering/Resolving]
  - Dysstasia [Not Recovered/Not Resolved]
  - Asthenia [Not Recovered/Not Resolved]
  - Pain [Unknown]
  - Joint range of motion decreased [Unknown]
  - Upper limb fracture [Recovered/Resolved]
  - Gait disturbance [Not Recovered/Not Resolved]
  - Urinary tract infection [Recovered/Resolved]
  - Somnolence [Not Recovered/Not Resolved]
  - Amnesia [Not Recovered/Not Resolved]
  - Large intestine infection [Unknown]
  - Oedema [Recovered/Resolved]
  - Red blood cell count decreased [Unknown]
  - Atrophy [Not Recovered/Not Resolved]
  - Cerebrovascular accident [Unknown]
  - Clostridium difficile infection [Recovered/Resolved]

NARRATIVE: CASE EVENT DATE: 20180902
